FAERS Safety Report 8845929 (Version 2)
Quarter: 2014Q1

REPORT INFORMATION
  Report Type: Spontaneous
  Country: US (occurrence: US)
  Receive Date: 20121017
  Receipt Date: 20140114
  Transmission Date: 20141002
  Serious: Yes (Other)
  Sender: FDA-Public Use
  Company Number: US-ROCHE-736633

PATIENT
  Age: 30 Year
  Sex: Male
  Weight: 90.7 kg

DRUGS (5)
  1. ACCUTANE [Suspect]
     Indication: ACNE
     Route: 065
     Dates: start: 199401, end: 199501
  2. ACCUTANE [Suspect]
     Route: 048
     Dates: start: 2005, end: 2005
  3. ACCUTANE [Suspect]
     Route: 048
  4. CLARAVIS [Suspect]
     Indication: ACNE
     Dosage: TWO 30 MG PILLS
     Route: 048
     Dates: start: 2007
  5. ATENOL [Concomitant]

REACTIONS (10)
  - Colitis ulcerative [Unknown]
  - Gastrointestinal injury [Unknown]
  - Inflammatory bowel disease [Unknown]
  - Haemorrhoids [Unknown]
  - Anxiety [Unknown]
  - Irritable bowel syndrome [Unknown]
  - Cold sweat [Unknown]
  - Aggression [Unknown]
  - Acne [Unknown]
  - Blood triglycerides increased [Unknown]
